FAERS Safety Report 25268773 (Version 1)
Quarter: 2025Q2

REPORT INFORMATION
  Report Type: Spontaneous
  Country: US (occurrence: None)
  Receive Date: 20250502
  Receipt Date: 20250502
  Transmission Date: 20250717
  Serious: No
  Sender: FDA-CTU
  Company Number: None

PATIENT

DRUGS (10)
  1. METFORMIN HYDROCHLORIDE [Suspect]
     Active Substance: METFORMIN HYDROCHLORIDE
     Indication: Glycosylated haemoglobin abnormal
     Dates: start: 20250422
  2. LEVOTHYROXINE [Concomitant]
     Active Substance: LEVOTHYROXINE
  3. DEVICE [Concomitant]
     Active Substance: DEVICE
  4. CALCIUM [Concomitant]
     Active Substance: CALCIUM
  5. MAGNESIUM [Concomitant]
     Active Substance: MAGNESIUM
  6. PROBIOTICS NOS [Concomitant]
     Active Substance: PROBIOTICS NOS
  7. VITAMINS [Concomitant]
     Active Substance: VITAMINS
  8. eye vitamin [Concomitant]
  9. GINKGO [Concomitant]
     Active Substance: GINKGO
  10. elderberry gummies [Concomitant]

REACTIONS (2)
  - Headache [None]
  - Dizziness exertional [None]

NARRATIVE: CASE EVENT DATE: 20250502
